FAERS Safety Report 4579513-8 (Version None)
Quarter: 2005Q1

REPORT INFORMATION
  Report Type: 
  Country: None (occurrence: None)
  Receive Date: 20050210
  Receipt Date: 20050210
  Transmission Date: 20050727
  Serious: Yes (Hospitalization, Other)
  Sender: FDA-Public Use
  Company Number: None

PATIENT
  Sex: Male
  Weight: 117 kg

DRUGS (5)
  1. INTERFERON-ALPHA [Suspect]
     Dosage: 9.0 MU SC 3X/WEEK CYCLE = 4 WEEKS
     Route: 058
     Dates: start: 20041124, end: 20050103
  2. DECADRON [Concomitant]
  3. PROLEUKIN [Concomitant]
  4. TARCEVA [Concomitant]
  5. TEMODAR [Concomitant]

REACTIONS (7)
  - BLOOD CREATININE INCREASED [None]
  - DIALYSIS [None]
  - DISEASE PROGRESSION [None]
  - HEPATIC LESION [None]
  - MALIGNANT NEOPLASM PROGRESSION [None]
  - METASTASES TO CENTRAL NERVOUS SYSTEM [None]
  - METASTASES TO LUNG [None]
